FAERS Safety Report 6639201-0 (Version None)
Quarter: 2010Q1

REPORT INFORMATION
  Report Type: 
  Country: None (occurrence: None)
  Receive Date: 20100312
  Receipt Date: 20100308
  Transmission Date: 20100710
  Serious: Yes (Death)
  Sender: FDA-Public Use
  Company Number: 2010SP011019

PATIENT
  Age: 63 Year
  Sex: Male

DRUGS (10)
  1. POSACONAZOLE [Suspect]
     Indication: PROPHYLAXIS AGAINST GRAFT VERSUS HOST DISEASE
     Dates: start: 20091002, end: 20091209
  2. POSACONAZOLE [Suspect]
     Indication: PROPHYLAXIS AGAINST GRAFT VERSUS HOST DISEASE
     Dates: start: 20091211
  3. LEVOFLOXACIN [Concomitant]
  4. NEUPOGEN [Concomitant]
  5. ACYCLOVIR [Concomitant]
  6. AMLODIPINE [Concomitant]
  7. LOW MOLECULAR WEIGHT HEPARIN [Concomitant]
  8. .. [Concomitant]
  9. CYCLOSPORINE [Concomitant]
  10. METHYLPREDNISOLONE [Concomitant]

REACTIONS (13)
  - BRONCHOPULMONARY ASPERGILLOSIS [None]
  - CENTRAL NERVOUS SYSTEM LYMPHOMA [None]
  - CEREBRAL ASPERGILLOSIS [None]
  - CHOLELITHIASIS [None]
  - DRUG INEFFECTIVE [None]
  - GRAFT DYSFUNCTION [None]
  - MYOPATHY [None]
  - NEUROLOGICAL DECOMPENSATION [None]
  - PLEURAL EFFUSION [None]
  - PNEUMONIA NECROTISING [None]
  - PULMONARY EMBOLISM [None]
  - TRANSPLANT FAILURE [None]
  - VASOGENIC CEREBRAL OEDEMA [None]
